FAERS Safety Report 23891762 (Version 1)
Quarter: 2024Q2

REPORT INFORMATION
  Report Type: Spontaneous
  Country: US (occurrence: US)
  Receive Date: 20240524
  Receipt Date: 20240524
  Transmission Date: 20240716
  Serious: Yes (Hospitalization, Other)
  Sender: FDA-Public Use
  Company Number: US-NOVOPROD-1223050

PATIENT
  Age: 53 Year
  Sex: Male

DRUGS (1)
  1. NOVOLOG [Suspect]
     Active Substance: INSULIN ASPART
     Indication: Type 2 diabetes mellitus
     Dosage: UNK(SLIDING SCALE0
     Route: 058

REACTIONS (9)
  - Coronary arterial stent insertion [Unknown]
  - Renal artery stent placement [Unknown]
  - Retinopathy [Unknown]
  - Stent placement [Unknown]
  - COVID-19 [Unknown]
  - Sleep apnoea syndrome [Unknown]
  - Dysstasia [Unknown]
  - Injection site discolouration [Unknown]
  - Injection site injury [Unknown]

NARRATIVE: CASE EVENT DATE: 20231201
